FAERS Safety Report 24954414 (Version 1)
Quarter: 2025Q1

REPORT INFORMATION
  Report Type: Spontaneous
  Country: US (occurrence: US)
  Receive Date: 20250211
  Receipt Date: 20250211
  Transmission Date: 20250409
  Serious: No
  Sender: ELI LILLY AND COMPANY
  Company Number: US-ELI_LILLY_AND_COMPANY-US202502001792

PATIENT
  Sex: Female

DRUGS (2)
  1. LYUMJEV KWIKPEN [Suspect]
     Active Substance: INSULIN LISPRO
     Indication: Product used for unknown indication
     Route: 065
  2. LANTUS [Suspect]
     Active Substance: INSULIN GLARGINE
     Indication: Product used for unknown indication
     Route: 065

REACTIONS (9)
  - Visual impairment [Unknown]
  - Feeling cold [Unknown]
  - Eye swelling [Unknown]
  - Appetite disorder [Unknown]
  - Blood pressure increased [Unknown]
  - Injection site erythema [Unknown]
  - Mouth swelling [Unknown]
  - Swollen tongue [Unknown]
  - Swelling face [Unknown]
